FAERS Safety Report 20358819 (Version 1)
Quarter: 2022Q1

REPORT INFORMATION
  Report Type: Spontaneous
  Country: HU (occurrence: HU)
  Receive Date: 20220120
  Receipt Date: 20220120
  Transmission Date: 20220423
  Serious: Yes (Other)
  Sender: FDA-Public Use
  Company Number: HU-ALEXION-61976

PATIENT
  Sex: Female
  Weight: 116 kg

DRUGS (12)
  1. SOLIRIS [Suspect]
     Active Substance: ECULIZUMAB
     Indication: Myasthenia gravis
     Dosage: UNK UNK, Q2W
     Route: 042
     Dates: start: 20150810
  2. SOLIRIS [Suspect]
     Active Substance: ECULIZUMAB
     Dosage: UNK
     Route: 065
     Dates: end: 20181212
  3. AMILORID [Concomitant]
     Indication: Hypertension
     Dosage: 5 MG, UNK
     Route: 065
  4. EDNYT HCT [Concomitant]
     Indication: Hypertension
     Dosage: UNK, BID
  5. FERRO FOLGAMMA [Concomitant]
     Indication: Iron deficiency
     Dosage: UNK, BID
     Route: 065
  6. FURON                              /00032601/ [Concomitant]
     Indication: Hypertension
     Dosage: 40 MG, UNK
     Route: 065
  7. IMURAN                             /00001501/ [Concomitant]
     Indication: Myasthenia gravis
     Route: 065
  8. KALIUM-R [Concomitant]
     Indication: Hypertension
     Dosage: 1200 MG, UNK
  9. LEVOTHYROXINE SODIUM [Concomitant]
     Active Substance: LEVOTHYROXINE SODIUM
     Indication: Hypothyroidism
     Dosage: 350 ?G, UNK
     Route: 065
  10. ALLOPURINOL [Concomitant]
     Active Substance: ALLOPURINOL
     Indication: Hyperuricaemia
     Dosage: 100 MG, UNK
     Route: 065
  11. MYTELASE [Concomitant]
     Active Substance: AMBENONIUM CHLORIDE
     Indication: Myasthenia gravis
     Dosage: 10 MG, UNK
  12. PANTOPRAZOLE [Concomitant]
     Active Substance: PANTOPRAZOLE
     Indication: Gastrooesophageal reflux disease
     Dosage: 40 MG, UNK
     Route: 065

REACTIONS (2)
  - Respiratory tract infection [Recovered/Resolved]
  - Pyrexia [Unknown]
